FAERS Safety Report 9607910 (Version 1)
Quarter: 2013Q4

REPORT INFORMATION
  Report Type: Spontaneous
  Country: JP (occurrence: None)
  Receive Date: 20131007
  Receipt Date: 20131007
  Transmission Date: 20140711
  Serious: Yes (Other)
  Sender: FDA-Public Use
  Company Number: JP-ALSI-201300241

PATIENT
  Age: 19 Day
  Sex: Male

DRUGS (2)
  1. OXYGEN [Suspect]
     Indication: NEONATAL RESPIRATORY DISTRESS SYNDROME
     Dosage: 0.50% TOTAL RESPIRATORY
     Route: 055
  2. OXYGEN [Suspect]
     Indication: NEONATAL RESPIRATORY DISTRESS SYNDROME
     Dosage: 0.60% TOTAL RESPIRATORY
     Route: 055

REACTIONS (2)
  - Haemolytic anaemia [None]
  - Anaemia Heinz body [None]
